FAERS Safety Report 7894366-8 (Version None)
Quarter: 2011Q4

REPORT INFORMATION
  Report Type: 
  Country: None (occurrence: None)
  Receive Date: 20111104
  Receipt Date: 20111020
  Transmission Date: 20120403
  Serious: Yes (Hospitalization, Other)
  Sender: FDA-Public Use
  Company Number: JP-ROCHE-798816

PATIENT
  Age: 48 Year
  Sex: Male
  Weight: 49 kg

DRUGS (11)
  1. REBAMIPIDE [Concomitant]
     Route: 048
     Dates: start: 20101227, end: 20110822
  2. ACTEMRA [Suspect]
     Dosage: DOSAGE IS UNCERTAIN
     Route: 041
     Dates: start: 20110712, end: 20110712
  3. ACTEMRA [Suspect]
     Indication: RHEUMATOID ARTHRITIS
     Dosage: DOSAGE IS UNCERTAIN
     Route: 041
     Dates: start: 20110428, end: 20110621
  4. BAKTAR [Concomitant]
     Route: 048
     Dates: start: 20110307, end: 20110822
  5. PREDNISOLONE [Suspect]
     Indication: PRODUCT USED FOR UNKNOWN INDICATION
     Dosage: DOSAGE IS UNCERTAIN.
     Route: 048
  6. LANSOPRAZOLE [Concomitant]
     Route: 048
     Dates: start: 20110712, end: 20110826
  7. MIGLITOL [Concomitant]
     Route: 048
     Dates: start: 20110517, end: 20110822
  8. ACTEMRA [Suspect]
     Dosage: DOSAGE IS UNCERTAIN
     Route: 041
     Dates: start: 20110726, end: 20110726
  9. LANSOPRAZOLE [Concomitant]
     Route: 042
     Dates: start: 20110827
  10. CYCLOSPORINE [Concomitant]
     Route: 048
     Dates: start: 20110302, end: 20110416
  11. ALENDRONATE SODIUM [Concomitant]
     Route: 048
     Dates: start: 20110216, end: 20110818

REACTIONS (6)
  - ASCITES [None]
  - MESOTHELIOMA MALIGNANT [None]
  - GASTRIC ULCER [None]
  - ILEUS PARALYTIC [None]
  - HYPERGLYCAEMIA [None]
  - DIARRHOEA [None]
